FAERS Safety Report 6054566-9 (Version None)
Quarter: 2009Q1

REPORT INFORMATION
  Report Type: 
  Country: None (occurrence: None)
  Receive Date: 20090127
  Receipt Date: 20090123
  Transmission Date: 20090719
  Serious: Yes (Death)
  Sender: FDA-Public Use
  Company Number: PHBS2009IN00607

PATIENT
  Age: 30 Year
  Sex: Male

DRUGS (6)
  1. CYCLOSPORINE [Suspect]
     Indication: STEM CELL TRANSPLANT
     Dosage: 1.5 MG/KG, BID
     Route: 042
  2. FLUDARABINE [Suspect]
     Dosage: UNK
  3. IRRADIATION [Concomitant]
  4. IMIPENEM [Concomitant]
  5. VANCOMYCIN [Concomitant]
  6. ACYCLOVIR [Concomitant]

REACTIONS (1)
  - PNEUMONIA FUNGAL [None]
